FAERS Safety Report 4659530-X (Version None)
Quarter: 2005Q2

REPORT INFORMATION
  Report Type: 
  Country: None (occurrence: None)
  Receive Date: 20050510
  Receipt Date: 20050429
  Transmission Date: 20051028
  Serious: Yes (Hospitalization)
  Sender: FDA-Public Use
  Company Number: 2005068898

PATIENT
  Age: 72 Year
  Sex: Female
  Weight: 36 kg

DRUGS (2)
  1. XANAX [Suspect]
     Indication: ANXIETY
     Dosage: 0.25 MG, ORAL
     Route: 048
     Dates: start: 20050108, end: 20050110
  2. MIANSERIN (MIANSERIN) [Suspect]
     Indication: ILL-DEFINED DISORDER
     Dosage: 10 MG, ORAL
     Route: 048
     Dates: start: 20050108, end: 20050120

REACTIONS (4)
  - COUGH [None]
  - LEUKOCYTOCLASTIC VASCULITIS [None]
  - PYREXIA [None]
  - RASH MACULO-PAPULAR [None]
